FAERS Safety Report 8831121 (Version 3)
Quarter: 2013Q2

REPORT INFORMATION
  Report Type: Spontaneous
  Country: US (occurrence: US)
  Receive Date: 20121008
  Receipt Date: 20130531
  Transmission Date: 20140414
  Serious: Yes (Other)
  Sender: FDA-Public Use
  Company Number: US-BAYER-2012-102241

PATIENT
  Age: 52 Year
  Sex: Male
  Weight: 106.58 kg

DRUGS (1)
  1. BAYER ADVANCED ASPIRIN EXTRA STRENGTH [Suspect]
     Indication: MYOCARDIAL INFARCTION
     Dosage: 500 MG,3 TABLETS AT A TIME
     Route: 048

REACTIONS (2)
  - Therapeutic response unexpected [None]
  - Off label use [None]
